FAERS Safety Report 6697196-8 (Version None)
Quarter: 2010Q2

REPORT INFORMATION
  Report Type: 
  Country: None (occurrence: None)
  Receive Date: 20100426
  Receipt Date: 20100416
  Transmission Date: 20101027
  Serious: Yes (Other)
  Sender: FDA-Public Use
  Company Number: JP-PFIZER INC-2009273753

PATIENT
  Age: 77 Year
  Sex: Male

DRUGS (5)
  1. LIPITOR [Suspect]
     Indication: HYPERCHOLESTEROLAEMIA
     Dosage: 5 MG, UNKNOWN/D
     Route: 048
     Dates: start: 20090217, end: 20090220
  2. LIPITOR [Suspect]
     Indication: BLOOD CHOLESTEROL INCREASED
  3. NU LOTAN [Concomitant]
  4. LOXOPROFEN [Concomitant]
  5. MUCOSTA [Concomitant]

REACTIONS (1)
  - CHROMATURIA [None]
